FAERS Safety Report 5361480-0 (Version None)
Quarter: 2007Q2

REPORT INFORMATION
  Report Type: 
  Country: None (occurrence: None)
  Receive Date: 20070619
  Receipt Date: 20070614
  Transmission Date: 20071010
  Serious: Yes (Life-Threatening, Hospitalization)
  Sender: FDA-Public Use
  Company Number: FRWYE918419AUG05

PATIENT
  Age: 68 Year
  Sex: Female

DRUGS (4)
  1. TAZOCILLINE [Suspect]
     Dosage: 12 G TOTAL DAILY
     Dates: end: 20050601
  2. MOTILIUM [Concomitant]
     Dosage: UNKNOWN
  3. TRIFLUCAN [Concomitant]
     Dosage: UNKNOWN
  4. OMEPRAZOLE [Suspect]
     Dosage: UNKNOWN
     Route: 048
     Dates: end: 20050601

REACTIONS (6)
  - BONE MARROW TOXICITY [None]
  - GRANULOCYTES ABNORMAL [None]
  - MEGAKARYOCYTES ABNORMAL [None]
  - PANCYTOPENIA [None]
  - PYREXIA [None]
  - RESPIRATORY DISTRESS [None]
